FAERS Safety Report 16649995 (Version 1)
Quarter: 2019Q3

REPORT INFORMATION
  Report Type: Spontaneous
  Country: DE (occurrence: DE)
  Receive Date: 20190731
  Receipt Date: 20190731
  Transmission Date: 20191004
  Serious: Yes (Congenital Anomaly, Other)
  Sender: FDA-Public Use
  Company Number: DE-AUROBINDO-AUR-APL-2019-044131

PATIENT

DRUGS (6)
  1. LASEA [Concomitant]
     Indication: ANXIETY DISORDER
     Dosage: UNK
     Route: 064
  2. LORAZEPAM. [Concomitant]
     Active Substance: LORAZEPAM
     Indication: ANXIETY DISORDER
     Dosage: 0.5 MILLIGRAM, DAILY, IF NECESSARY
     Route: 064
     Dates: start: 20180124
  3. PASCOFLAIR [Concomitant]
     Indication: RESTLESSNESS
     Dosage: UNK
     Route: 064
  4. DIAZEPAM. [Concomitant]
     Active Substance: DIAZEPAM
     Indication: ANXIETY DISORDER
     Dosage: 2 MILLIGRAM, DAILY
     Route: 064
     Dates: start: 20180129
  5. BUDESONIDE. [Concomitant]
     Active Substance: BUDESONIDE
     Indication: ASTHMA
     Dosage: UNK
     Route: 064
     Dates: start: 20171222
  6. SERTRALINE [Suspect]
     Active Substance: SERTRALINE HYDROCHLORIDE
     Indication: ANXIETY DISORDER
     Dosage: UNK, 75 [MG/D (BIS 50 MG/D) ]
     Route: 064
     Dates: start: 20180124

REACTIONS (2)
  - Foetal exposure during pregnancy [Not Recovered/Not Resolved]
  - Polydactyly [Not Recovered/Not Resolved]

NARRATIVE: CASE EVENT DATE: 20180914
